FAERS Safety Report 5901878-2 (Version None)
Quarter: 2008Q3

REPORT INFORMATION
  Report Type: 
  Country: None (occurrence: None)
  Receive Date: 20080929
  Receipt Date: 20080724
  Transmission Date: 20090109
  Serious: Yes (Life-Threatening, Hospitalization)
  Sender: FDA-Public Use
  Company Number: FI-BAYER-200822359GPV

PATIENT
  Age: 61 Year
  Sex: Male

DRUGS (13)
  1. FLUDARA [Suspect]
     Indication: CHRONIC LYMPHOCYTIC LEUKAEMIA
     Route: 048
     Dates: start: 20071212, end: 20080331
  2. MABTHERA [Suspect]
     Indication: CHRONIC LYMPHOCYTIC LEUKAEMIA
     Route: 041
     Dates: start: 20071211, end: 20080601
  3. MABTHERA [Suspect]
     Route: 041
     Dates: start: 20080601, end: 20080617
  4. PREDNISOLON [Concomitant]
     Indication: SERONEGATIVE ARTHRITIS
     Route: 048
     Dates: start: 20040422
  5. OXIKLORIN [Concomitant]
     Indication: SERONEGATIVE ARTHRITIS
     Route: 048
     Dates: start: 20060904
  6. SOMAC [Concomitant]
     Indication: ENZYME INHIBITION
     Route: 048
     Dates: start: 20080515
  7. APURIN-HEXAL [Concomitant]
     Indication: PROPHYLAXIS
     Route: 048
     Dates: start: 20071211
  8. COTRIM DS [Concomitant]
     Indication: ANTIFUNGAL PROPHYLAXIS
     Route: 048
     Dates: start: 20080118
  9. CALCICHEW-D3 FORTE [Concomitant]
     Indication: OSTEOPOROSIS PROPHYLAXIS
     Route: 048
     Dates: start: 20070709
  10. DUREKAL [Concomitant]
     Indication: MINERAL SUPPLEMENTATION
     Route: 048
     Dates: start: 20080516
  11. ACLOVIR [Concomitant]
     Indication: ANTIVIRAL PROPHYLAXIS
     Dosage: UNIT DOSE: 400 MG
     Route: 048
     Dates: start: 20080118
  12. NEULASTA [Concomitant]
     Indication: NEUTROPENIA
     Route: 058
     Dates: start: 20071215, end: 20080619
  13. NANOGRAM 50MG/ML [Concomitant]
     Indication: HYPOGAMMAGLOBULINAEMIA
     Route: 041
     Dates: start: 20071005, end: 20080617

REACTIONS (6)
  - EYE MOVEMENT DISORDER [None]
  - HEMIPARESIS [None]
  - MUSCULAR WEAKNESS [None]
  - REVERSIBLE POSTERIOR LEUKOENCEPHALOPATHY SYNDROME [None]
  - SYNCOPE [None]
  - VISUAL IMPAIRMENT [None]
